FAERS Safety Report 19765558 (Version 3)
Quarter: 2021Q4

REPORT INFORMATION
  Report Type: Spontaneous
  Country: US (occurrence: None)
  Receive Date: 20210830
  Receipt Date: 20211117
  Transmission Date: 20220303
  Serious: No
  Sender: FDA-Public Use
  Company Number: 2021A681610

PATIENT
  Sex: Male
  Weight: 81.6 kg

DRUGS (2)
  1. BYETTA [Suspect]
     Active Substance: EXENATIDE
     Indication: Type 2 diabetes mellitus
     Route: 058
     Dates: start: 20210726
  2. GLUCOPHAGE [Concomitant]
     Active Substance: METFORMIN HYDROCHLORIDE

REACTIONS (7)
  - Hunger [Unknown]
  - Decreased appetite [Recovered/Resolved]
  - Abdominal distension [Unknown]
  - Device leakage [Unknown]
  - Intentional device misuse [Unknown]
  - Drug ineffective [Unknown]
  - Device breakage [Unknown]
